FAERS Safety Report 24045392 (Version 4)
Quarter: 2024Q3

REPORT INFORMATION
  Report Type: Report from Study
  Country: US (occurrence: US)
  Receive Date: 20240703
  Receipt Date: 20240911
  Transmission Date: 20241017
  Serious: Yes (Hospitalization)
  Sender: ALNYLAM PHARMACEUTICALS
  Company Number: US-ALNYLAM PHARMACEUTICALS, INC.-ALN-2024-003680

PATIENT

DRUGS (2)
  1. GIVLAARI [Suspect]
     Active Substance: GIVOSIRAN SODIUM
     Indication: Porphyria
     Dosage: UNK
     Route: 065
     Dates: start: 20240405, end: 20240405
  2. GIVLAARI [Suspect]
     Active Substance: GIVOSIRAN SODIUM
     Dosage: UNK
     Route: 065
     Dates: start: 20240531, end: 20240531

REACTIONS (6)
  - Sepsis [Unknown]
  - Acute cholecystitis necrotic [Unknown]
  - Intestinal obstruction [Unknown]
  - Therapy interrupted [Unknown]
  - Amnesia [Unknown]
  - COVID-19 [Unknown]
